FAERS Safety Report 22203510 (Version 1)
Quarter: 2023Q2

REPORT INFORMATION
  Report Type: Spontaneous
  Country: US (occurrence: US)
  Receive Date: 20230412
  Receipt Date: 20230412
  Transmission Date: 20230722
  Serious: No
  Sender: FDA-Public Use
  Company Number: US-JNJFOC-20191106765

PATIENT
  Sex: Male

DRUGS (1)
  1. IMODIUM A-D [Suspect]
     Active Substance: LOPERAMIDE HYDROCHLORIDE
     Indication: Diarrhoea
     Dosage: 2.5 MLS EACH KIDS PUT IN A LITTLE CAP AND THE SYRINGE AND PUT IN THEIR MOUTH
     Route: 048
     Dates: start: 20191103, end: 20191104

REACTIONS (1)
  - Wrong technique in product usage process [Unknown]
